FAERS Safety Report 9697538 (Version 1)
Quarter: 2013Q4

REPORT INFORMATION
  Report Type: Spontaneous
  Country: US (occurrence: None)
  Receive Date: 20131119
  Receipt Date: 20131119
  Transmission Date: 20140711
  Serious: Yes (Life-Threatening, Hospitalization, Other)
  Sender: FDA-Public Use
  Company Number: None

PATIENT
  Age: 84 Year
  Sex: Female
  Weight: 63.5 kg

DRUGS (8)
  1. PRAZOSIN [Suspect]
     Indication: NIGHTMARE
     Route: 048
     Dates: start: 20131031, end: 20131101
  2. METOPROLOL [Concomitant]
  3. LIPITOR [Concomitant]
  4. BENICOR HCT [Concomitant]
  5. AMITRIPTYLINE [Concomitant]
  6. BABY ASPIRIN [Concomitant]
  7. OCUVITE (ADUCT 50) [Concomitant]
  8. LLYAINE [Concomitant]

REACTIONS (5)
  - Blood pressure decreased [None]
  - Asthenia [None]
  - Dizziness [None]
  - Headache [None]
  - Movement disorder [None]
